FAERS Safety Report 15257726 (Version 1)
Quarter: 2018Q3

REPORT INFORMATION
  Report Type: Spontaneous
  Country: CN (occurrence: CN)
  Receive Date: 20180808
  Receipt Date: 20180808
  Transmission Date: 20181010
  Serious: Yes (Other)
  Sender: FDA-Public Use
  Company Number: PHHY2018CN062207

PATIENT
  Age: 46 Year
  Sex: Male

DRUGS (2)
  1. GAMMA GLOBULIN [Concomitant]
     Active Substance: IMMUNE GLOBULIN NOS
     Indication: ENCEPHALITIS AUTOIMMUNE
     Dosage: 30 G, QD
     Route: 042
  2. METHYLPREDNISOLONE. [Suspect]
     Active Substance: METHYLPREDNISOLONE
     Indication: ENCEPHALITIS AUTOIMMUNE
     Dosage: 1 G, QD
     Route: 042

REACTIONS (5)
  - Lethargy [Unknown]
  - Hemiplegia [Unknown]
  - Cerebral venous thrombosis [Unknown]
  - Cerebral haemorrhage [Unknown]
  - Muscular weakness [Unknown]
